FAERS Safety Report 4659977-1 (Version None)
Quarter: 2005Q2

REPORT INFORMATION
  Report Type: 
  Country: None (occurrence: None)
  Receive Date: 20050510
  Receipt Date: 20050502
  Transmission Date: 20051028
  Serious: Yes (Hospitalization, Other)
  Sender: FDA-Public Use
  Company Number: 2005069222

PATIENT
  Age: 68 Year
  Sex: Female
  Weight: 74.8435 kg

DRUGS (6)
  1. NORVASC [Suspect]
     Indication: HYPERTENSION
     Dosage: 10 MG (10 MG, 1 IN 24 HR), ORAL
     Route: 048
  2. VALSARTAN [Concomitant]
  3. WARFARIN SODIUM [Concomitant]
  4. FLUOXETINE HCL [Concomitant]
  5. PENTOXIFYLLINE [Concomitant]
  6. MONTELUKAST SODIUM (MONTELUKAST SODIUM) [Concomitant]

REACTIONS (4)
  - ASTHMA [None]
  - BRONCHITIS [None]
  - CONDITION AGGRAVATED [None]
  - IMMUNE SYSTEM DISORDER [None]
